FAERS Safety Report 7387646-6 (Version None)
Quarter: 2011Q1

REPORT INFORMATION
  Report Type: 
  Country: None (occurrence: None)
  Receive Date: 20110331
  Receipt Date: 20110322
  Transmission Date: 20110831
  Serious: Yes (Hospitalization, Congenital Anomaly)
  Sender: FDA-Public Use
  Company Number: US-CEPHALON-2011001382

PATIENT
  Sex: Female
  Weight: 3 kg

DRUGS (5)
  1. ALLEGRA [Concomitant]
     Route: 064
  2. VALTREX [Concomitant]
     Route: 064
  3. PROVIGIL [Suspect]
     Route: 064
  4. NUVIGIL [Suspect]
     Route: 064
  5. ZOLOFT [Concomitant]
     Route: 064

REACTIONS (1)
  - INTESTINAL MALROTATION [None]
